FAERS Safety Report 4318227-6 (Version None)
Quarter: 2004Q1

REPORT INFORMATION
  Report Type: 
  Country: None (occurrence: None)
  Receive Date: 20040315
  Receipt Date: 20040301
  Transmission Date: 20041129
  Serious: Yes (Hospitalization)
  Sender: FDA-Public Use
  Company Number: 2004-111696-NL

PATIENT
  Age: 69 Year
  Sex: Male

DRUGS (7)
  1. MIRTAZAPINE [Suspect]
     Dosage: 45 MG
     Dates: start: 20031111
  2. ASPIRIN [Concomitant]
  3. ATORVASTATIN [Concomitant]
  4. CLOPIDOGREL [Concomitant]
  5. RAMIPRIL [Concomitant]
  6. METOPROLOL TARTRATE [Concomitant]
  7. GABEXATE MESILATE [Concomitant]

REACTIONS (1)
  - BILIARY COLIC [None]
